FAERS Safety Report 8957530 (Version 5)
Quarter: 2017Q3

REPORT INFORMATION
  Report Type: Spontaneous
  Country: BR (occurrence: BR)
  Receive Date: 20121210
  Receipt Date: 20170925
  Transmission Date: 20171128
  Serious: Yes (Other)
  Sender: FDA-Public Use
  Company Number: BR-PFIZER INC-2012309405

PATIENT
  Age: 48 Year
  Sex: Female
  Weight: 70 kg

DRUGS (11)
  1. PRISTIQ EXTENDED-RELEASE [Suspect]
     Active Substance: DESVENLAFAXINE SUCCINATE
     Indication: PANIC DISORDER
  2. AAS [Concomitant]
     Active Substance: ASPIRIN
     Dosage: 100MG DAILY
     Route: 048
     Dates: start: 2010
  3. PRISTIQ EXTENDED-RELEASE [Suspect]
     Active Substance: DESVENLAFAXINE SUCCINATE
     Indication: STRESS
     Dosage: 1 TABLET OF 100 MG, 1X/DAY (IN THE MORNING)
     Route: 048
     Dates: end: 20130525
  4. LAMICTAL [Concomitant]
     Active Substance: LAMOTRIGINE
     Indication: MENTAL DISORDER
     Dosage: 1 TABLET OF 100 MG, 1X/DAY (AT NIGHT)
     Route: 048
     Dates: start: 2010
  5. SELOZOK [Concomitant]
     Active Substance: METOPROLOL SUCCINATE
     Dosage: 50 MG, 1X/DAY (IN THE MORNING)
     Route: 048
     Dates: start: 2010
  6. PROPANOLOL [Concomitant]
     Active Substance: PROPRANOLOL HYDROCHLORIDE
     Dosage: 40 MG, 3 TABLETS DAILY
     Route: 048
     Dates: start: 2007
  7. CLINFAR [Concomitant]
     Active Substance: SIMVASTATIN
     Dosage: UNK
     Route: 048
     Dates: start: 2005
  8. RIVOTRIL [Concomitant]
     Active Substance: CLONAZEPAM
     Indication: MENTAL DISORDER
     Dosage: 1 TABLET IN THE MORNING AND 1 TABLET AT NIGHT TWICE A DAY
     Route: 048
     Dates: start: 2010
  9. GLIFAGE XR [Concomitant]
     Active Substance: METFORMIN HYDROCHLORIDE
     Dosage: 500 MG, 1X/DAY (AT NIGHT)
     Route: 048
  10. PRISTIQ EXTENDED-RELEASE [Suspect]
     Active Substance: DESVENLAFAXINE SUCCINATE
     Indication: DEPRESSION
     Dosage: 1 TABLET OF 100 MG, 1X/DAY (IN THE MORNING)
     Route: 048
     Dates: start: 2010, end: 20121206
  11. PRISTIQ EXTENDED-RELEASE [Suspect]
     Active Substance: DESVENLAFAXINE SUCCINATE
     Indication: MENTAL DISORDER

REACTIONS (14)
  - Aggression [Recovered/Resolved]
  - Drug effect decreased [Not Recovered/Not Resolved]
  - Mood altered [Not Recovered/Not Resolved]
  - Depressed mood [Recovered/Resolved]
  - Paraesthesia [Recovered/Resolved]
  - Homicidal ideation [Recovered/Resolved]
  - Mental impairment [Recovered/Resolved]
  - Nervousness [Recovered/Resolved]
  - Hypertension [Unknown]
  - Suicidal ideation [Recovered/Resolved]
  - Feeling abnormal [Recovered/Resolved]
  - Crying [Not Recovered/Not Resolved]
  - Feeding disorder [Recovered/Resolved]
  - Nausea [Recovered/Resolved]

NARRATIVE: CASE EVENT DATE: 2010
